FAERS Safety Report 13973195 (Version 1)
Quarter: 2017Q3

REPORT INFORMATION
  Report Type: Spontaneous
  Country: FR (occurrence: FR)
  Receive Date: 20170915
  Receipt Date: 20170915
  Transmission Date: 20171128
  Serious: Yes (Other)
  Sender: FDA-Public Use
  Company Number: FR-MERCK KGAA-2026360

PATIENT
  Age: 54 Year
  Sex: Female
  Weight: 90 kg

DRUGS (1)
  1. NOVOTHYROX [Suspect]
     Active Substance: LEVOTHYROXINE SODIUM
     Indication: PRODUCT USED FOR UNKNOWN INDICATION
     Route: 048
     Dates: start: 2007

REACTIONS (7)
  - Arthralgia [Unknown]
  - Constipation [Unknown]
  - Anxiety [Unknown]
  - Weight increased [Unknown]
  - Insomnia [Unknown]
  - Fatigue [Unknown]
  - Diffuse alopecia [Unknown]

NARRATIVE: CASE EVENT DATE: 201704
